FAERS Safety Report 11001547 (Version 1)
Quarter: 2015Q2

REPORT INFORMATION
  Report Type: Spontaneous
  Country: GB (occurrence: GB)
  Receive Date: 20150408
  Receipt Date: 20150408
  Transmission Date: 20150821
  Serious: Yes (Life-Threatening, Other)
  Sender: FDA-Public Use
  Company Number: GB-TEVA-553371ACC

PATIENT
  Age: 86 Year
  Sex: Female

DRUGS (19)
  1. BUPIVACAINE [Concomitant]
     Active Substance: BUPIVACAINE
  2. SIMVASTATIN. [Concomitant]
     Active Substance: SIMVASTATIN
  3. ATRACURIUM [Concomitant]
     Active Substance: ATRACURIUM
  4. DIAMORPHINE [Concomitant]
     Active Substance: DIACETYLMORPHINE
  5. DALTEPARIN [Concomitant]
     Active Substance: DALTEPARIN
  6. DIGOXIN. [Concomitant]
     Active Substance: DIGOXIN
  7. PARACETAMOL [Concomitant]
     Active Substance: ACETAMINOPHEN
  8. PROPOFOL. [Concomitant]
     Active Substance: PROPOFOL
  9. ALLOPURINOL. [Concomitant]
     Active Substance: ALLOPURINOL
  10. CALCICHEW [Concomitant]
     Active Substance: CALCIUM CARBONATE
  11. MIDAZOLAM [Concomitant]
     Active Substance: MIDAZOLAM\MIDAZOLAM HYDROCHLORIDE
  12. OMEPRAZOLE. [Concomitant]
     Active Substance: OMEPRAZOLE
  13. REMIFENTANIL [Concomitant]
     Active Substance: REMIFENTANIL
  14. METRONIDAZOLE. [Concomitant]
     Active Substance: METRONIDAZOLE
  15. SODIUM PHOSPHATE [Concomitant]
     Active Substance: SODIUM PHOSPHATE
  16. AMOXICILLIN. [Suspect]
     Active Substance: AMOXICILLIN
     Indication: ANTIBIOTIC PROPHYLAXIS
     Route: 042
     Dates: start: 20141104, end: 20141104
  17. ALENDRONIC ACID [Concomitant]
     Active Substance: ALENDRONIC ACID
  18. GENTAMICIN. [Concomitant]
     Active Substance: GENTAMICIN
  19. WARFARIN [Concomitant]
     Active Substance: WARFARIN

REACTIONS (2)
  - Anaphylactic reaction [Recovered/Resolved]
  - Atrial fibrillation [Recovered/Resolved]

NARRATIVE: CASE EVENT DATE: 20141104
